FAERS Safety Report 9513499 (Version 1)
Quarter: 2013Q3

REPORT INFORMATION
  Report Type: Spontaneous
  Country: US (occurrence: US)
  Receive Date: 20130910
  Receipt Date: 20130910
  Transmission Date: 20140515
  Serious: No
  Sender: FDA-Public Use
  Company Number: US-TARO-2013P1006636

PATIENT
  Age: 80 Year
  Sex: Male
  Weight: 69.85 kg

DRUGS (9)
  1. WARFARIN SODIUM TABLETS USP 4MG [Suspect]
     Indication: ATRIAL FIBRILLATION
     Route: 048
     Dates: start: 1996
  2. WARFARIN SODIUM TABLETS USP 4MG [Suspect]
     Indication: ATRIAL FIBRILLATION
     Route: 048
     Dates: start: 1996
  3. FINASTERIDE 5 MG [Concomitant]
  4. FUROSEMIDE [Concomitant]
  5. LISINOPRIL [Concomitant]
  6. PROPRANOLOL ER [Concomitant]
  7. SIMVASTATIN [Concomitant]
  8. TAMSULOSIN [Concomitant]
  9. NIASPAN [Concomitant]
     Dates: end: 201305

REACTIONS (1)
  - Coeliac disease [Not Recovered/Not Resolved]
